FAERS Safety Report 5734324-2 (Version None)
Quarter: 2008Q2

REPORT INFORMATION
  Report Type: 
  Country: None (occurrence: None)
  Receive Date: 20080512
  Receipt Date: 20080502
  Transmission Date: 20081010
  Serious: Yes (Hospitalization)
  Sender: FDA-Public Use
  Company Number: US-JNJFOC-20080500642

PATIENT
  Sex: Female
  Weight: 39 kg

DRUGS (2)
  1. REMICADE [Suspect]
     Indication: CROHN'S DISEASE
  2. CLINDAMYCIN [Concomitant]

REACTIONS (2)
  - INTESTINAL OBSTRUCTION [None]
  - PNEUMOTHORAX [None]
